FAERS Safety Report 6384983-9 (Version None)
Quarter: 2009Q4

REPORT INFORMATION
  Report Type: 
  Country: None (occurrence: None)
  Receive Date: 20091002
  Receipt Date: 20090923
  Transmission Date: 20100525
  Serious: Yes (Other)
  Sender: FDA-Public Use
  Company Number: US-ROCHE-468438

PATIENT
  Sex: Female
  Weight: 77.1 kg

DRUGS (1)
  1. ACCUTANE [Suspect]
     Indication: ACNE
     Route: 048
     Dates: start: 19850101, end: 19870101

REACTIONS (39)
  - AFFECT LABILITY [None]
  - ANAEMIA [None]
  - ANAL FISTULA [None]
  - ANXIETY [None]
  - APATHY [None]
  - APPENDICITIS [None]
  - ARTHRITIS [None]
  - BACK PAIN [None]
  - BINOCULAR EYE MOVEMENT DISORDER [None]
  - CONTUSION [None]
  - CROHN'S DISEASE [None]
  - DECREASED APPETITE [None]
  - DEPRESSION [None]
  - DIVERTICULITIS [None]
  - DRUG EXPOSURE DURING PREGNANCY [None]
  - EMOTIONAL DISTRESS [None]
  - EPISCLERITIS [None]
  - ERYTHEMA NODOSUM [None]
  - FATIGUE [None]
  - FISTULA [None]
  - FUNGAL INFECTION [None]
  - GASTROOESOPHAGEAL REFLUX DISEASE [None]
  - HAEMATOCHEZIA [None]
  - HAEMORRHOIDS [None]
  - HEADACHE [None]
  - HIATUS HERNIA [None]
  - INFLAMMATION [None]
  - INFLAMMATORY BOWEL DISEASE [None]
  - INSOMNIA [None]
  - INTESTINAL FISTULA [None]
  - IRRITABLE BOWEL SYNDROME [None]
  - JOINT SWELLING [None]
  - MEDICATION RESIDUE [None]
  - NODULE [None]
  - PAIN IN EXTREMITY [None]
  - PREGNANCY [None]
  - PYODERMA GANGRENOSUM [None]
  - TENDONITIS [None]
  - ULCER [None]
